FAERS Safety Report 8391915-0 (Version None)
Quarter: 2012Q2

REPORT INFORMATION
  Report Type: 
  Country: None (occurrence: None)
  Receive Date: 20120529
  Receipt Date: 20120522
  Transmission Date: 20120825
  Serious: Yes (Life-Threatening, Hospitalization)
  Sender: FDA-Public Use
  Company Number: FR-GLAXOSMITHKLINE-B0792469A

PATIENT
  Age: 57 Year
  Sex: Female
  Weight: 110 kg

DRUGS (3)
  1. ACETAMINOPHEN W/ CODEINE [Concomitant]
     Indication: BACK PAIN
     Dosage: 1TAB THREE TIMES PER DAY
     Dates: start: 20120320, end: 20120327
  2. NABUMETONE [Suspect]
     Indication: BACK PAIN
     Dosage: 1G TWICE PER DAY
     Route: 048
     Dates: start: 20120320, end: 20120327
  3. TEMAZEPAM [Concomitant]
     Indication: BACK PAIN
     Dosage: 1TAB PER DAY
     Dates: start: 20120320, end: 20120327

REACTIONS (2)
  - SHOCK HAEMORRHAGIC [None]
  - UPPER GASTROINTESTINAL HAEMORRHAGE [None]
